FAERS Safety Report 6750419-9 (Version None)
Quarter: 2010Q2

REPORT INFORMATION
  Report Type: 
  Country: None (occurrence: None)
  Receive Date: 20100601
  Receipt Date: 20100519
  Transmission Date: 20101027
  Serious: Yes (Other)
  Sender: FDA-Public Use
  Company Number: CA-ELI_LILLY_AND_COMPANY-CA201005005285

PATIENT
  Age: 55 Year
  Sex: Female
  Weight: 77.098 kg

DRUGS (6)
  1. ZYPREXA [Suspect]
     Indication: SCHIZOPHRENIA
     Dosage: 20 MG, EACH EVENING
     Route: 048
     Dates: start: 20070101
  2. ZYPREXA ZYDIS [Suspect]
     Indication: SCHIZOPHRENIA
     Dosage: 20 MG, EACH EVENING
     Route: 048
     Dates: start: 20070101
  3. INSULIN [Concomitant]
  4. METFORMIN HCL [Concomitant]
  5. LIPITOR [Concomitant]
  6. NOVASEN [Concomitant]

REACTIONS (2)
  - DIZZINESS [None]
  - HEADACHE [None]
